FAERS Safety Report 8297711-7 (Version None)
Quarter: 2012Q2

REPORT INFORMATION
  Report Type: 
  Country: None (occurrence: None)
  Receive Date: 20120419
  Receipt Date: 20120413
  Transmission Date: 20120825
  Serious: Yes (Other)
  Sender: FDA-Public Use
  Company Number: FR-PFIZER INC-2011218720

PATIENT
  Age: 86 Year
  Sex: Male

DRUGS (7)
  1. EZETIMIBE [Concomitant]
     Dosage: UNK
     Dates: start: 20080101, end: 20110101
  2. TOCO [Concomitant]
     Dosage: UNK
     Dates: start: 20080101
  3. PERINDOPRIL ERBUMINE [Concomitant]
     Dosage: UNK
     Dates: start: 20030101, end: 20110101
  4. CORDARONE [Suspect]
     Dosage: 200 MG DAILY FOUR TIMES PER WEEK
     Route: 048
  5. CORDARONE [Suspect]
     Dosage: 200 MG DAILY THREE TIMES PER WEEK
     Route: 048
     Dates: start: 20110701, end: 20110830
  6. CORDARONE [Suspect]
     Indication: ATRIAL FIBRILLATION
     Dosage: 200 MG DAILY FIVE TIMES PER WEEK
     Route: 048
     Dates: start: 20040101, end: 20080101
  7. ASPIRIN [Concomitant]
     Dosage: UNK
     Dates: start: 20050101

REACTIONS (5)
  - JAUNDICE [None]
  - FATIGUE [None]
  - WEIGHT DECREASED [None]
  - HEPATITIS [None]
  - ENCEPHALOPATHY [None]
